FAERS Safety Report 7289660-8 (Version None)
Quarter: 2011Q1

REPORT INFORMATION
  Report Type: 
  Country: None (occurrence: None)
  Receive Date: 20110214
  Receipt Date: 20110210
  Transmission Date: 20110831
  Serious: Yes (Hospitalization)
  Sender: FDA-Public Use
  Company Number: DE-BIOGENIDEC-2010BI039233

PATIENT
  Age: 56 Year
  Sex: Female
  Weight: 60 kg

DRUGS (1)
  1. AVONEX [Suspect]
     Indication: RELAPSING-REMITTING MULTIPLE SCLEROSIS
     Route: 030
     Dates: start: 20010301

REACTIONS (5)
  - INJECTION SITE RASH [None]
  - LIVER FUNCTION TEST ABNORMAL [None]
  - PHOBIA [None]
  - GAIT DISTURBANCE [None]
  - RENAL FUNCTION TEST ABNORMAL [None]
